FAERS Safety Report 8594029-X (Version None)
Quarter: 2012Q3

REPORT INFORMATION
  Report Type: 
  Country: None (occurrence: None)
  Receive Date: 20120814
  Receipt Date: 20120801
  Transmission Date: 20120928
  Serious: No
  Sender: FDA-Public Use
  Company Number: US-ASTRAZENECA-2011SE04956

PATIENT
  Age: 54 Year
  Sex: Male
  Weight: 102.1 kg

DRUGS (9)
  1. METFORMIN HCL [Concomitant]
     Indication: DIABETES MELLITUS
  2. ZOCOR [Concomitant]
  3. EXFORGE HCT [Concomitant]
     Indication: BLOOD PRESSURE
  4. ABILIFY [Concomitant]
  5. CELEXA [Concomitant]
  6. SEROQUEL XR [Suspect]
     Indication: BIPOLAR I DISORDER
     Route: 048
     Dates: start: 20060101, end: 20110117
  7. SEROQUEL XR [Suspect]
     Route: 048
  8. METOPROLOL TARTRATE [Concomitant]
     Indication: BLOOD PRESSURE
  9. NUVIGIL [Concomitant]

REACTIONS (8)
  - DEPRESSED MOOD [None]
  - ANXIETY [None]
  - ASTHENIA [None]
  - DRUG DOSE OMISSION [None]
  - INSOMNIA [None]
  - BIPOLAR I DISORDER [None]
  - SOMNOLENCE [None]
  - IRRITABILITY [None]
